FAERS Safety Report 4351867-7 (Version None)
Quarter: 2004Q2

REPORT INFORMATION
  Report Type: 
  Country: None (occurrence: None)
  Receive Date: 20040416
  Receipt Date: 20031121
  Transmission Date: 20050107
  Serious: No
  Sender: FDA-Public Use
  Company Number: 2003-110924-NL

PATIENT
  Sex: Male

DRUGS (1)
  1. NUVARING [Suspect]

REACTIONS (1)
  - MEDICAL DEVICE DISCOMFORT [None]
